FAERS Safety Report 8512712-9 (Version None)
Quarter: 2012Q3

REPORT INFORMATION
  Report Type: 
  Country: None (occurrence: None)
  Receive Date: 20120716
  Receipt Date: 20120710
  Transmission Date: 20120928
  Serious: Yes (Hospitalization)
  Sender: FDA-Public Use
  Company Number: CA-B.I. PHARMACEUTICALS,INC./RIDGEFIELD-2012-CN-01433CN

PATIENT
  Age: 67 Year
  Sex: Male

DRUGS (4)
  1. HEART MEDICATIONS [Concomitant]
     Indication: CARDIAC DISORDER
  2. SPIRIVA [Suspect]
     Indication: CHRONIC OBSTRUCTIVE PULMONARY DISEASE
     Dates: start: 20120605
  3. SYMBICORT [Concomitant]
     Indication: CHRONIC OBSTRUCTIVE PULMONARY DISEASE
  4. ANTIBIOTICS [Concomitant]
     Indication: LUNG INFECTION
     Dates: start: 20120601

REACTIONS (2)
  - INCORRECT DOSE ADMINISTERED [None]
  - MYOCARDIAL INFARCTION [None]
